FAERS Safety Report 7595891-X (Version None)
Quarter: 2011Q3

REPORT INFORMATION
  Report Type: 
  Country: None (occurrence: None)
  Receive Date: 20110707
  Receipt Date: 20110628
  Transmission Date: 20111222
  Serious: Yes (Hospitalization)
  Sender: FDA-Public Use
  Company Number: PHHY2011FR58657

PATIENT
  Sex: Male

DRUGS (7)
  1. OLMESARTAN MEDOXOMIL [Concomitant]
     Dosage: 10 MG, UNK
  2. ATHYMIL [Concomitant]
     Dosage: 10 MG, UNK
  3. RABEPRAZOLE SODIUM [Concomitant]
     Dosage: 20 MG, UNK
  4. FORLAX [Concomitant]
     Dosage: UNK UKN, MACROGOL 4000
  5. RIFAMPICIN [Suspect]
     Indication: TUBERCULOSIS
     Dosage: 300 MG, BID
     Route: 048
     Dates: start: 20110226, end: 20110406
  6. PREDNISONE [Concomitant]
     Indication: PULMONARY SARCOIDOSIS
     Dosage: 40 MG, QD
  7. AMLODIPINE [Concomitant]
     Dosage: 10 MG, UNK

REACTIONS (7)
  - FIBROSIS [None]
  - LIVER DISORDER [None]
  - GENERAL PHYSICAL HEALTH DETERIORATION [None]
  - VOMITING [None]
  - JAUNDICE [None]
  - GASTROINTESTINAL DISORDER [None]
  - CONSTIPATION [None]
